FAERS Safety Report 5788893-7 (Version None)
Quarter: 2008Q2

REPORT INFORMATION
  Report Type: 
  Country: None (occurrence: None)
  Receive Date: 20080626
  Receipt Date: 20080616
  Transmission Date: 20081010
  Serious: Yes (Death, Hospitalization)
  Sender: FDA-Public Use
  Company Number: CA-JNJFOC-20080604332

PATIENT
  Sex: Female
  Weight: 40.9 kg

DRUGS (1)
  1. REMICADE [Suspect]
     Indication: ANKYLOSING SPONDYLITIS
     Dosage: TOTAL # DOSES: 39
     Route: 042

REACTIONS (2)
  - DEATH [None]
  - HOSPITALISATION [None]
